FAERS Safety Report 15136122 (Version 4)
Quarter: 2018Q4

REPORT INFORMATION
  Report Type: Spontaneous
  Country: US (occurrence: US)
  Receive Date: 20180712
  Receipt Date: 20181008
  Transmission Date: 20190204
  Serious: Yes (Hospitalization, Other)
  Sender: FDA-Public Use
  Company Number: US-PFIZER INC-2018276366

PATIENT
  Age: 69 Year
  Sex: Female

DRUGS (4)
  1. XELJANZ XR [Suspect]
     Active Substance: TOFACITINIB CITRATE
     Dosage: 11 MG, 1X/DAY
  2. BD PEN [Concomitant]
     Dosage: UNK NEEDLE MIS 31 G X5
  3. XELJANZ XR [Suspect]
     Active Substance: TOFACITINIB CITRATE
     Dosage: 11 MG, DAILY, (1 TABLET BY MOUTH EVERY DAY)
     Route: 048
     Dates: start: 201807, end: 2018
  4. XELJANZ XR [Suspect]
     Active Substance: TOFACITINIB CITRATE
     Indication: RHEUMATOID ARTHRITIS
     Dosage: 11 MG, DAILY, (1 TABLET BY MOUTH EVERY DAY)
     Route: 048
     Dates: start: 201712

REACTIONS (4)
  - Cerebrovascular accident [Recovered/Resolved]
  - Rib fracture [Unknown]
  - Fall [Unknown]
  - Kidney infection [Unknown]

NARRATIVE: CASE EVENT DATE: 2018
